FAERS Safety Report 12420141 (Version 3)
Quarter: 2016Q4

REPORT INFORMATION
  Report Type: Spontaneous
  Country: US (occurrence: US)
  Receive Date: 20160531
  Receipt Date: 20161114
  Transmission Date: 20170207
  Serious: No
  Sender: FDA-Public Use
  Company Number: US-GLAXOSMITHKLINE-US2016068495

PATIENT
  Age: 69 Year
  Sex: Female

DRUGS (5)
  1. CALCIUM [Concomitant]
     Active Substance: CALCIUM
  2. IMITREX [Suspect]
     Active Substance: SUMATRIPTAN SUCCINATE
     Indication: MIGRAINE
     Dosage: 6 MG, PRN
     Route: 058
     Dates: start: 1992
  3. COQ10 [Concomitant]
     Active Substance: UBIDECARENONE
  4. SIMVASTATIN. [Concomitant]
     Active Substance: SIMVASTATIN
  5. VITAMIN C [Concomitant]
     Active Substance: ASCORBIC ACID

REACTIONS (8)
  - Migraine [Recovered/Resolved]
  - Eye disorder [Recovering/Resolving]
  - Hyperacusis [Recovered/Resolved]
  - Aura [Recovering/Resolving]
  - Photophobia [Recovered/Resolved]
  - Feeling cold [Recovering/Resolving]
  - Visual impairment [Recovering/Resolving]
  - Pain [Recovered/Resolved]

NARRATIVE: CASE EVENT DATE: 20160513
